FAERS Safety Report 5301158-2 (Version None)
Quarter: 2007Q2

REPORT INFORMATION
  Report Type: 
  Country: None (occurrence: None)
  Receive Date: 20070418
  Receipt Date: 20070410
  Transmission Date: 20071010
  Serious: Yes (Hospitalization, Other)
  Sender: FDA-Public Use
  Company Number: US-PFIZER INC-2007014418

PATIENT
  Sex: Female
  Weight: 97.1 kg

DRUGS (4)
  1. LYRICA [Suspect]
     Indication: BACK PAIN
     Dates: start: 20070216, end: 20070101
  2. LYRICA [Suspect]
     Indication: RADICULAR PAIN
  3. LEXAPRO [Concomitant]
     Dates: start: 20070130, end: 20070214
  4. DARVOCET-N 100 [Concomitant]
     Dates: start: 20060601

REACTIONS (6)
  - CENTRAL NERVOUS SYSTEM LESION [None]
  - CONVERSION DISORDER [None]
  - DEPRESSION [None]
  - PAIN [None]
  - POST-TRAUMATIC STRESS DISORDER [None]
  - SPEECH DISORDER [None]
